FAERS Safety Report 14836534 (Version 3)
Quarter: 2024Q2

REPORT INFORMATION
  Report Type: Spontaneous
  Country: FR (occurrence: FR)
  Receive Date: 20180502
  Receipt Date: 20240419
  Transmission Date: 20240716
  Serious: Yes (Other)
  Sender: FDA-Public Use
  Company Number: FR-AUROBINDO-AUR-APL-2018-023064

PATIENT
  Age: 13 Year
  Sex: Male

DRUGS (27)
  1. DOXORUBICIN [Suspect]
     Active Substance: DOXORUBICIN
     Indication: Acute lymphocytic leukaemia
     Dosage: 42 MILLIGRAM
     Route: 042
     Dates: start: 20170530, end: 20170613
  2. PREDNISONE [Suspect]
     Active Substance: PREDNISONE
     Indication: Acute lymphocytic leukaemia
     Dosage: 100 MILLIGRAM, ONCE A DAY TOTAL DOSE 300
     Route: 048
     Dates: start: 20161129, end: 20161228
  3. PREDNISONE [Suspect]
     Active Substance: PREDNISONE
     Indication: Acute lymphocytic leukaemia
     Dosage: 15 MILLIGRAM
     Route: 065
     Dates: start: 20161202
  4. PREDNISONE [Suspect]
     Active Substance: PREDNISONE
     Dosage: UNK
     Route: 065
     Dates: start: 20170602, end: 20170602
  5. ADRIAMYCIN [Suspect]
     Active Substance: DOXORUBICIN HYDROCHLORIDE
     Indication: Acute lymphocytic leukaemia
     Dosage: 42 MILLIGRAM
     Route: 042
     Dates: start: 20070530
  6. CYCLOPHOSPHAMIDE [Suspect]
     Active Substance: CYCLOPHOSPHAMIDE
     Indication: Acute lymphocytic leukaemia
     Dosage: 1500 MILLIGRAM (1980 MG,QD TOTAL DOSE: 1640)
     Route: 042
     Dates: start: 20170113, end: 20170209
  7. CYCLOPHOSPHAMIDE [Suspect]
     Active Substance: CYCLOPHOSPHAMIDE
     Dosage: 1640 MILLIGRAM
     Route: 042
     Dates: start: 20170621, end: 20170627
  8. CYTARABINE [Suspect]
     Active Substance: CYTARABINE
     Indication: Acute lymphocytic leukaemia
     Dosage: 30 MILLIGRAM
     Route: 037
     Dates: start: 20161202, end: 20161202
  9. CYTARABINE [Suspect]
     Active Substance: CYTARABINE
     Dosage: 30 MILLIGRAM, ONCE A DAY TOTAL DOSE 1680
     Route: 037
     Dates: start: 20161202, end: 20161202
  10. CYTARABINE [Suspect]
     Active Substance: CYTARABINE
     Dosage: 110 MILLIGRAM
     Route: 042
     Dates: start: 20161202
  11. CYTARABINE [Suspect]
     Active Substance: CYTARABINE
     Dosage: 110 MILLIGRAM
     Route: 042
     Dates: start: 20170115
  12. CYTARABINE [Suspect]
     Active Substance: CYTARABINE
     Dosage: 110 MILLIGRAM, ONCE A DAY, TOTAL DOSE, 1680
     Route: 042
     Dates: start: 20170629, end: 20170713
  13. CYTARABINE [Suspect]
     Active Substance: CYTARABINE
     Dosage: 120 MILLIGRAM, TOTAL DOSE 1680
     Route: 042
  14. DAUNORUBICIN [Suspect]
     Active Substance: DAUNORUBICIN
     Indication: Acute lymphocytic leukaemia
     Dosage: 65 MILLIGRAM
     Route: 042
     Dates: start: 20161130, end: 20161222
  15. DAUNORUBICIN [Suspect]
     Active Substance: DAUNORUBICIN
     Dosage: 65 MILLIGRAM, ONCE A DAY
     Route: 042
     Dates: start: 20161130, end: 20161222
  16. DEXAMETHASONE [Suspect]
     Active Substance: DEXAMETHASONE
     Indication: Acute lymphocytic leukaemia
     Dosage: 96 MILLIGRAM
     Route: 048
     Dates: start: 20170317, end: 20170322
  17. DEXAMETHASONE [Suspect]
     Active Substance: DEXAMETHASONE
     Dosage: 16.5 MILLIGRAM
     Route: 048
     Dates: start: 20170530, end: 20170613
  18. HYDROCORTISONE [Suspect]
     Active Substance: HYDROCORTISONE
     Indication: Acute lymphocytic leukaemia
     Dosage: 15 MILLIGRAM
     Route: 037
     Dates: start: 20161202
  19. METHOTREXATE [Suspect]
     Active Substance: METHOTREXATE
     Indication: Acute lymphocytic leukaemia
     Dosage: 15 MILLIGRAM, ONCE A DAY
     Route: 037
     Dates: start: 20161129
  20. METHOTREXATE [Suspect]
     Active Substance: METHOTREXATE
     Dosage: 8000 MILLIGRAM, ONCE A DAY
     Route: 042
     Dates: start: 20170417
  21. METHOTREXATE [Suspect]
     Active Substance: METHOTREXATE
     Dosage: 15 MILLIGRAM
     Route: 037
     Dates: start: 20170602, end: 20170629
  22. PEGASPARGASE [Suspect]
     Active Substance: PEGASPARGASE
     Indication: Acute lymphocytic leukaemia
     Dosage: 4200 INTERNATIONAL UNIT
     Route: 042
     Dates: start: 20161205
  23. PEGASPARGASE [Suspect]
     Active Substance: PEGASPARGASE
     Dosage: 4200 INTERNATIONAL UNIT
     Route: 042
     Dates: start: 20170602, end: 20170715
  24. VINCRISTINE [Suspect]
     Active Substance: VINCRISTINE
     Indication: Acute lymphocytic leukaemia
     Dosage: 2 MILLIGRAM, ONCE A DAY TOTAL DOSE 70
     Route: 042
     Dates: start: 20161130, end: 20220722
  25. MERCAPTOPURINE [Suspect]
     Active Substance: MERCAPTOPURINE
     Indication: Acute lymphocytic leukaemia
     Dosage: 40 MILLIGRAM, ONCE A DAY
     Route: 048
     Dates: start: 20170113
  26. ETOPOSIDE [Suspect]
     Active Substance: ETOPOSIDE
     Indication: Acute lymphocytic leukaemia
     Dosage: 240 MILLIGRAM, ONCE A DAY
     Route: 042
     Dates: start: 20170319, end: 20170321
  27. THIOGUANINE [Suspect]
     Active Substance: THIOGUANINE
     Indication: Acute lymphocytic leukaemia
     Dosage: UNK
     Route: 048
     Dates: start: 20170710

REACTIONS (3)
  - Hypertriglyceridaemia [Recovered/Resolved]
  - Off label use [Unknown]
  - Product use in unapproved indication [Unknown]

NARRATIVE: CASE EVENT DATE: 20170620
